FAERS Safety Report 10036349 (Version 1)
Quarter: 2014Q1

REPORT INFORMATION
  Report Type: Spontaneous
  Country: US (occurrence: US)
  Receive Date: 20140325
  Receipt Date: 20140325
  Transmission Date: 20141002
  Serious: Yes (Other)
  Sender: FDA-Public Use
  Company Number: PHHY2014US031860

PATIENT
  Age: 56 Year
  Sex: Male

DRUGS (3)
  1. OXALIPLATIN [Suspect]
     Indication: COLON CANCER METASTATIC
  2. 5-FLUOROURACIL [Suspect]
     Indication: COLON CANCER METASTATIC
  3. FOLINIC ACID [Suspect]
     Indication: COLON CANCER METASTATIC

REACTIONS (16)
  - Autoimmune haemolytic anaemia [Unknown]
  - Palmar erythema [Unknown]
  - Anaphylactic reaction [Unknown]
  - Flushing [Unknown]
  - Chest discomfort [Unknown]
  - Dyspnoea [Unknown]
  - Type I hypersensitivity [Unknown]
  - Pyrexia [Unknown]
  - Chills [Unknown]
  - Back pain [Unknown]
  - Palpitations [Unknown]
  - Dizziness [Unknown]
  - Electrocardiogram ST-T segment abnormal [Unknown]
  - Platelet count decreased [Unknown]
  - Colon cancer metastatic [Unknown]
  - Malignant neoplasm progression [Unknown]
